FAERS Safety Report 7946619-2 (Version None)
Quarter: 2011Q4

REPORT INFORMATION
  Report Type: 
  Country: None (occurrence: None)
  Receive Date: 20111129
  Receipt Date: 20111122
  Transmission Date: 20120403
  Serious: Yes (Other)
  Sender: FDA-Public Use
  Company Number: US-BRISTOL-MYERS SQUIBB COMPANY-16244063

PATIENT
  Age: 72 Year
  Sex: Female

DRUGS (1)
  1. AVAPRO [Suspect]
     Dosage: DOSE DECREASED 150MG DAILY:20APR11.
     Dates: start: 20110401, end: 20110602

REACTIONS (1)
  - HYPONATRAEMIA [None]
